FAERS Safety Report 4397771-X (Version None)
Quarter: 2004Q3

REPORT INFORMATION
  Report Type: 
  Country: None (occurrence: None)
  Receive Date: 20040713
  Receipt Date: 20040628
  Transmission Date: 20050211
  Serious: Yes (Hospitalization)
  Sender: FDA-Public Use
  Company Number: 702106

PATIENT
  Sex: Male

DRUGS (1)
  1. AMEVIVE [Suspect]
     Dosage: 15 MG QW IM
     Route: 030
     Dates: start: 20040501, end: 20040614

REACTIONS (6)
  - CONSTIPATION [None]
  - OEDEMA PERIPHERAL [None]
  - PROSTATITIS [None]
  - URINARY TRACT INFECTION [None]
  - VASCULAR NEOPLASM [None]
  - VENA CAVA THROMBOSIS [None]
